FAERS Safety Report 20098035 (Version 1)
Quarter: 2021Q4

REPORT INFORMATION
  Report Type: Spontaneous
  Country: CN (occurrence: CN)
  Receive Date: 20211122
  Receipt Date: 20211122
  Transmission Date: 20220303
  Serious: Yes (Life-Threatening, Hospitalization)
  Sender: FDA-Public Use
  Company Number: CN-ANIPHARMA-2021-CN-000377

PATIENT
  Age: 37 Year
  Sex: Female
  Weight: 53 kg

DRUGS (2)
  1. ANASTROZOLE [Suspect]
     Active Substance: ANASTROZOLE
     Indication: Neoplasm
     Dosage: 1 MG DAILY
     Route: 048
     Dates: start: 20210716, end: 20210913
  2. GOSERELIN ACETATE [Suspect]
     Active Substance: GOSERELIN ACETATE
     Dosage: 3.6 MG MONTH
     Route: 058
     Dates: start: 20210716, end: 20210913

REACTIONS (5)
  - White blood cell count decreased [Recovering/Resolving]
  - Neutrophil count decreased [Recovering/Resolving]
  - Red blood cell count decreased [Recovering/Resolving]
  - Platelet count decreased [Recovering/Resolving]
  - Myelosuppression [Recovering/Resolving]

NARRATIVE: CASE EVENT DATE: 20210913
